FAERS Safety Report 24536068 (Version 5)
Quarter: 2025Q3

REPORT INFORMATION
  Report Type: Report from Study
  Country: US (occurrence: US)
  Receive Date: 20241022
  Receipt Date: 20250716
  Transmission Date: 20251021
  Serious: Yes (Hospitalization, Other)
  Sender: TAKEDA
  Company Number: US-TAKEDA-2022TUS084932

PATIENT
  Sex: Female
  Weight: 55 kg

DRUGS (16)
  1. .ALPHA.1-PROTEINASE INHIBITOR HUMAN [Suspect]
     Active Substance: .ALPHA.1-PROTEINASE INHIBITOR HUMAN
     Indication: Alpha-1 antitrypsin deficiency
     Dosage: 60 MILLIGRAM/KILOGRAM, 1/WEEK
     Dates: start: 20220902
  2. .ALPHA.1-PROTEINASE INHIBITOR HUMAN [Suspect]
     Active Substance: .ALPHA.1-PROTEINASE INHIBITOR HUMAN
  3. TAMIFLU [Suspect]
     Active Substance: OSELTAMIVIR PHOSPHATE
     Indication: Influenza
  4. EPINEPHRINE [Concomitant]
     Active Substance: EPINEPHRINE
  5. SPIRIVA RESPIMAT [Concomitant]
     Active Substance: TIOTROPIUM BROMIDE
  6. SODIUM CHLORIDE [Concomitant]
     Active Substance: SODIUM CHLORIDE
  7. BREZTRI [Concomitant]
     Active Substance: BUDESONIDE\FORMOTEROL\GLYCOPYRROLATE
  8. ALBUTEROL SULFATE [Concomitant]
     Active Substance: ALBUTEROL SULFATE
  9. OXYGEN [Concomitant]
     Active Substance: OXYGEN
  10. DIPHENHYDRAMINE HYDROCHLORIDE [Concomitant]
     Active Substance: DIPHENHYDRAMINE HYDROCHLORIDE
  11. Lmx [Concomitant]
  12. SYMBICORT [Concomitant]
     Active Substance: BUDESONIDE\FORMOTEROL FUMARATE DIHYDRATE
  13. HEPARIN [Concomitant]
     Active Substance: HEPARIN SODIUM
  14. MUCINEX [Concomitant]
     Active Substance: GUAIFENESIN
     Indication: Respiratory tract congestion
  15. VITAMIN C [Concomitant]
     Active Substance: ASCORBIC ACID
  16. BUDESONIDE\FORMOTEROL FUMARATE [Concomitant]
     Active Substance: BUDESONIDE\FORMOTEROL FUMARATE

REACTIONS (20)
  - Pneumonia viral [Unknown]
  - Nasopharyngitis [Recovering/Resolving]
  - Pneumonia [Unknown]
  - Wheezing [Recovering/Resolving]
  - Influenza A virus test positive [Unknown]
  - Oxygen saturation abnormal [Unknown]
  - Weight decreased [Unknown]
  - Erythema [Unknown]
  - Dyspnoea exertional [Recovering/Resolving]
  - Respiratory tract congestion [Unknown]
  - Decreased appetite [Unknown]
  - Gastroenteritis viral [Unknown]
  - Product dose omission issue [Unknown]
  - Insurance issue [Unknown]
  - Migraine [Unknown]
  - Diarrhoea [Unknown]
  - Abdominal pain [Recovered/Resolved]
  - Dyspnoea [Unknown]
  - Cough [Unknown]
  - Nausea [Unknown]
